FAERS Safety Report 19824327 (Version 1)
Quarter: 2021Q3

REPORT INFORMATION
  Report Type: Spontaneous
  Country: DE (occurrence: DE)
  Receive Date: 20210913
  Receipt Date: 20210913
  Transmission Date: 20211014
  Serious: Yes (Hospitalization, Other)
  Sender: FDA-Public Use
  Company Number: NVSC2021DE202265

PATIENT
  Age: 47 Year
  Sex: Female
  Weight: 80 kg

DRUGS (2)
  1. DEXAMETHASONE. [Suspect]
     Active Substance: DEXAMETHASONE
     Indication: PRODUCT USED FOR UNKNOWN INDICATION
     Dosage: UNK (PAUSE)
     Route: 065
  2. LEVOTHYROXINE SODIUM. [Concomitant]
     Active Substance: LEVOTHYROXINE SODIUM
     Indication: PRODUCT USED FOR UNKNOWN INDICATION
     Dosage: 1 DF, QD (1?0?0?0)
     Route: 065

REACTIONS (14)
  - General physical health deterioration [Unknown]
  - Hypokalaemia [Unknown]
  - Muscular weakness [Unknown]
  - Renal impairment [Unknown]
  - Electrolyte imbalance [Unknown]
  - Dysphagia [Unknown]
  - Hyperglycaemia [Unknown]
  - Electrocardiogram abnormal [Unknown]
  - Constipation [Unknown]
  - Musculoskeletal pain [Unknown]
  - Nausea [Unknown]
  - Diabetes mellitus inadequate control [Unknown]
  - Systemic infection [Unknown]
  - Hypotension [Unknown]

NARRATIVE: CASE EVENT DATE: 202101
